FAERS Safety Report 4673265-9 (Version None)
Quarter: 2005Q2

REPORT INFORMATION
  Report Type: 
  Country: None (occurrence: None)
  Receive Date: 20050525
  Receipt Date: 20050303
  Transmission Date: 20051028
  Serious: Yes (Other)
  Sender: FDA-Public Use
  Company Number: PHBS2005JP03294

PATIENT
  Age: 21 Year
  Sex: Male

DRUGS (3)
  1. ALEVIATIN [Concomitant]
     Indication: EPILEPSY
     Route: 048
  2. PHENOBARBITAL [Concomitant]
     Indication: EPILEPSY
     Route: 048
  3. ZADITEN [Suspect]
     Indication: URTICARIA
     Dosage: 2 MG/DAY
     Route: 048
     Dates: start: 20050303, end: 20050304

REACTIONS (1)
  - EPILEPSY [None]
